FAERS Safety Report 8270261-X (Version None)
Quarter: 2012Q1

REPORT INFORMATION
  Report Type: 
  Country: None (occurrence: None)
  Receive Date: 20120327
  Receipt Date: 20100315
  Transmission Date: 20120608
  Serious: Yes (Hospitalization, Other)
  Sender: FDA-Public Use
  Company Number: PHHY2010US09062

PATIENT
  Age: 69 Year
  Sex: Male

DRUGS (3)
  1. GLEEVEC [Suspect]
     Indication: CHRONIC MYELOID LEUKAEMIA
     Dosage: 400 MG, QD, ORAL
     Route: 048
  2. LASIX [Concomitant]
  3. PROCRIT [Concomitant]

REACTIONS (9)
  - DYSPNOEA [None]
  - OEDEMA PERIPHERAL [None]
  - HAEMORRHAGIC DIATHESIS [None]
  - PLEURAL EFFUSION [None]
  - BLOOD COUNT ABNORMAL [None]
  - RED BLOOD CELL COUNT ABNORMAL [None]
  - ANAEMIA [None]
  - BREATH SOUNDS ABNORMAL [None]
  - PLATELET COUNT DECREASED [None]
